FAERS Safety Report 8333029-1 (Version None)
Quarter: 2012Q2

REPORT INFORMATION
  Report Type: 
  Country: None (occurrence: None)
  Receive Date: 20120503
  Receipt Date: 20120424
  Transmission Date: 20120825
  Serious: Yes (Other)
  Sender: FDA-Public Use
  Company Number: PHHY2012MX036557

PATIENT
  Sex: Female

DRUGS (1)
  1. EXFORGE [Suspect]
     Indication: HYPERTENSION
     Dosage: 1 D (VALS 160MG, AMLO 05 MG)F, PER DAY
     Dates: start: 20100101

REACTIONS (2)
  - FALL [None]
  - WRIST FRACTURE [None]
